FAERS Safety Report 5814078-1 (Version None)
Quarter: 2008Q3

REPORT INFORMATION
  Report Type: 
  Country: None (occurrence: None)
  Receive Date: 20080717
  Receipt Date: 20080626
  Transmission Date: 20090109
  Serious: No
  Sender: FDA-Public Use
  Company Number: US-BOEHRINGER INGELHEIM GMBH, GERMANY-2008-BP-09673BP

PATIENT
  Sex: Female

DRUGS (2)
  1. SPIRIVA [Suspect]
     Dates: end: 20080501
  2. ALBUTEROL [Suspect]

REACTIONS (3)
  - CATARACT [None]
  - EYE DISORDER [None]
  - HEART RATE INCREASED [None]
